FAERS Safety Report 8759227 (Version 2)
Quarter: 2013Q4

REPORT INFORMATION
  Report Type: Spontaneous
  Country: US (occurrence: US)
  Receive Date: 20120829
  Receipt Date: 20131101
  Transmission Date: 20140711
  Serious: No
  Sender: FDA-Public Use
  Company Number: US-009507513-1208USA002221

PATIENT
  Sex: Female
  Weight: 90.7 kg

DRUGS (3)
  1. MIRALAX [Suspect]
     Indication: CONSTIPATION
     Dosage: 17 G, BID
     Route: 048
     Dates: start: 2008
  2. MIRALAX [Suspect]
     Indication: MEDICAL OBSERVATION
  3. TEMAZEPAM [Concomitant]
     Indication: INSOMNIA
     Dosage: UNK, UNKNOWN
     Route: 065

REACTIONS (3)
  - Incorrect drug administration duration [Unknown]
  - Inappropriate schedule of drug administration [Unknown]
  - Off label use [Unknown]
